FAERS Safety Report 7663505 (Version 12)
Quarter: 2016Q2

REPORT INFORMATION
  Report Type: Report from Study
  Country: CA (occurrence: CA)
  Receive Date: 20101110
  Receipt Date: 20160606
  Transmission Date: 20160815
  Serious: Yes (Other)
  Sender: FDA-Public Use
  Company Number: PHHY2010CA73140

PATIENT
  Sex: Male

DRUGS (5)
  1. ATIVAN [Concomitant]
     Active Substance: LORAZEPAM
     Indication: PRODUCT USED FOR UNKNOWN INDICATION
     Route: 065
  2. ZANTAC [Concomitant]
     Active Substance: RANITIDINE HYDROCHLORIDE
     Indication: PRODUCT USED FOR UNKNOWN INDICATION
     Route: 065
  3. FUROSEMIDE. [Concomitant]
     Active Substance: FUROSEMIDE
     Indication: PRODUCT USED FOR UNKNOWN INDICATION
     Route: 065
  4. EXJADE [Suspect]
     Active Substance: DEFERASIROX
     Indication: MYELODYSPLASTIC SYNDROME
     Dosage: 4 TABLET, QD
     Route: 048
     Dates: start: 200912
  5. DIGOXIN. [Concomitant]
     Active Substance: DIGOXIN
     Indication: PRODUCT USED FOR UNKNOWN INDICATION
     Route: 065

REACTIONS (15)
  - Disease progression [Unknown]
  - Wrong technique in product usage process [Unknown]
  - Gastrointestinal mucosal exfoliation [Unknown]
  - Blood pressure decreased [Unknown]
  - General physical health deterioration [Unknown]
  - Diarrhoea [Unknown]
  - Serum ferritin abnormal [Not Recovered/Not Resolved]
  - Hernia [Unknown]
  - Angina pectoris [Recovered/Resolved]
  - Bronchitis [Recovered/Resolved]
  - Hallucination [Unknown]
  - Blood iron abnormal [Unknown]
  - Lung neoplasm malignant [Unknown]
  - Serum ferritin increased [Unknown]
  - Drug ineffective [Unknown]
